FAERS Safety Report 25958367 (Version 1)
Quarter: 2025Q4

REPORT INFORMATION
  Report Type: Spontaneous
  Country: US (occurrence: US)
  Receive Date: 20251024
  Receipt Date: 20251024
  Transmission Date: 20260117
  Serious: Yes (Disabling, Other)
  Sender: NOVO NORDISK
  Company Number: US-NOVOPROD-1540886

PATIENT
  Sex: Male

DRUGS (5)
  1. OZEMPIC [Suspect]
     Active Substance: SEMAGLUTIDE
     Indication: Type 2 diabetes mellitus
     Dosage: 0.25 MG
     Dates: start: 2019
  2. GLUCOFINE [Concomitant]
     Indication: Type 2 diabetes mellitus
     Dosage: UNK
  3. METFORMIN [Concomitant]
     Active Substance: METFORMIN HYDROCHLORIDE
     Indication: Type 2 diabetes mellitus
     Dosage: UNK
  4. LANTUS [Concomitant]
     Active Substance: INSULIN GLARGINE
     Indication: Type 2 diabetes mellitus
     Dosage: UNK
  5. GLIMEPIRIDE [Concomitant]
     Active Substance: GLIMEPIRIDE
     Indication: Type 2 diabetes mellitus
     Dosage: UNK

REACTIONS (1)
  - Atrioventricular block [Not Recovered/Not Resolved]

NARRATIVE: CASE EVENT DATE: 20190101
